FAERS Safety Report 17663621 (Version 1)
Quarter: 2020Q2

REPORT INFORMATION
  Report Type: Spontaneous
  Country: FR (occurrence: FR)
  Receive Date: 20200414
  Receipt Date: 20200414
  Transmission Date: 20200713
  Serious: Yes (Other)
  Sender: FDA-Public Use
  Company Number: FR-AUROBINDO-AUR-APL-2020-018137

PATIENT
  Age: 69 Year
  Sex: Male

DRUGS (1)
  1. TRAMADOL/ PARACETAMOL 37.5MG/325MG FILM-COATED TABLETS [Suspect]
     Active Substance: ACETAMINOPHEN\TRAMADOL
     Indication: MUSCULOSKELETAL CHEST PAIN
     Dosage: TWO OR THREE TABLETS FOR TEN DAYS
     Route: 065

REACTIONS (1)
  - Erectile dysfunction [Unknown]
